FAERS Safety Report 5509869-0 (Version None)
Quarter: 2007Q4

REPORT INFORMATION
  Report Type: 
  Country: None (occurrence: None)
  Receive Date: 20071108
  Receipt Date: 20071030
  Transmission Date: 20080405
  Serious: Yes (Death, Congenital Anomaly, Other)
  Sender: FDA-Public Use
  Company Number: CH-ABBOTT-07P-151-0422939-00

PATIENT
  Sex: Male

DRUGS (4)
  1. VALPROATE SODIUM [Suspect]
     Indication: DRUG EXPOSURE DURING PREGNANCY
     Route: 064
  2. COUMADIN [Suspect]
     Indication: DRUG EXPOSURE DURING PREGNANCY
     Route: 064
  3. TRAMADOL HCL [Suspect]
     Indication: DRUG EXPOSURE DURING PREGNANCY
     Route: 064
  4. METHADONE HCL [Suspect]
     Indication: DRUG EXPOSURE DURING PREGNANCY
     Route: 064

REACTIONS (17)
  - ATRIAL SEPTAL DEFECT [None]
  - CLEFT PALATE [None]
  - CONGENITAL EPIGLOTTAL ANOMALY [None]
  - CONGENITAL HEARING DISORDER [None]
  - DYSMORPHISM [None]
  - HAEMORRHAGE INTRACRANIAL [None]
  - HYDROCELE [None]
  - HYPERTELORISM OF ORBIT [None]
  - INGUINAL HERNIA [None]
  - LOW SET EARS [None]
  - MULTIPLE CONGENITAL ABNORMALITIES [None]
  - NERVOUS SYSTEM DISORDER [None]
  - PREMATURE BABY [None]
  - PULMONARY VALVE STENOSIS CONGENITAL [None]
  - RESPIRATORY DISORDER [None]
  - SKULL MALFORMATION [None]
  - TALIPES [None]
